FAERS Safety Report 16723304 (Version 1)
Quarter: 2019Q3

REPORT INFORMATION
  Report Type: Spontaneous
  Country: US (occurrence: US)
  Receive Date: 20190821
  Receipt Date: 20190821
  Transmission Date: 20191005
  Serious: Yes (Other)
  Sender: FDA-Public Use
  Company Number: US-LUPIN PHARMACEUTICALS INC.-2019-05306

PATIENT
  Age: 13 Year
  Sex: Female
  Weight: 39.7 kg

DRUGS (6)
  1. CLONAZEPAM. [Concomitant]
     Active Substance: CLONAZEPAM
     Indication: OBSESSIVE-COMPULSIVE DISORDER
     Dosage: 0.5 MILLIGRAM, BID
     Route: 065
  2. SERTRALINE [Suspect]
     Active Substance: SERTRALINE HYDROCHLORIDE
     Indication: OBSESSIVE-COMPULSIVE DISORDER
     Dosage: 200 MILLIGRAM, QD
     Route: 065
  3. BUSPIRONE [Concomitant]
     Active Substance: BUSPIRONE HYDROCHLORIDE
     Indication: OBSESSIVE-COMPULSIVE DISORDER
     Dosage: 7.5 MILLIGRAM, TID
     Route: 065
  4. PALIPERIDONE. [Concomitant]
     Active Substance: PALIPERIDONE
     Indication: OBSESSIVE-COMPULSIVE DISORDER
     Dosage: 3 MILLIGRAM, QD, NIGHTLY
     Route: 065
  5. SERTRALINE [Suspect]
     Active Substance: SERTRALINE HYDROCHLORIDE
     Dosage: 50 MILLIGRAM, QD
     Route: 065
  6. SERTRALINE [Suspect]
     Active Substance: SERTRALINE HYDROCHLORIDE
     Dosage: 75 MILLIGRAM, QD
     Route: 065

REACTIONS (2)
  - Thinking abnormal [Recovered/Resolved]
  - Withdrawal syndrome [Recovered/Resolved]
